FAERS Safety Report 25786571 (Version 2)
Quarter: 2025Q3

REPORT INFORMATION
  Report Type: Spontaneous
  Country: US (occurrence: US)
  Receive Date: 20250910
  Receipt Date: 20250911
  Transmission Date: 20251020
  Serious: Yes (Other)
  Sender: PFIZER
  Company Number: US-PFIZER INC-PV202400083410

PATIENT
  Age: 66 Year
  Sex: Female

DRUGS (3)
  1. TUKYSA [Suspect]
     Active Substance: TUCATINIB
     Indication: Breast cancer metastatic
     Dosage: 150 MG (1 TABLET TWICE DAILY)
  2. TUKYSA [Suspect]
     Active Substance: TUCATINIB
     Dosage: 50 MG (2 TABLETS TWICE DAILY)
  3. TUKYSA [Suspect]
     Active Substance: TUCATINIB
     Dosage: 250 MG (50MG; 2 TABLETS TWICE DAILY ALONG WITH 150MG; 1 TABLET TWICE DAILY)

REACTIONS (2)
  - Mastectomy [Unknown]
  - Off label use [Unknown]
